FAERS Safety Report 23849768 (Version 1)
Quarter: 2024Q2

REPORT INFORMATION
  Report Type: Spontaneous
  Country: CN (occurrence: CN)
  Receive Date: 20240513
  Receipt Date: 20240513
  Transmission Date: 20240715
  Serious: Yes (Hospitalization)
  Sender: FDA-Public Use
  Company Number: CN-002147023-NVSC2024CN099559

PATIENT
  Age: 83 Year
  Sex: Male

DRUGS (1)
  1. SACUBITRIL\VALSARTAN [Suspect]
     Active Substance: SACUBITRIL\VALSARTAN
     Indication: Cor pulmonale chronic
     Dosage: 25 MG, QD
     Route: 048
     Dates: start: 20240508, end: 20240508

REACTIONS (12)
  - Dizziness [Recovering/Resolving]
  - Headache [Recovering/Resolving]
  - Blood pressure abnormal [Recovering/Resolving]
  - Oxygen saturation decreased [Recovering/Resolving]
  - Ill-defined disorder [Recovering/Resolving]
  - Cyanosis [Recovering/Resolving]
  - Barrel chest [Recovering/Resolving]
  - Respiratory muscle weakness [Recovering/Resolving]
  - Vocal cord disorder [Recovering/Resolving]
  - Speech disorder [Recovering/Resolving]
  - Breath sounds abnormal [Recovering/Resolving]
  - Rales [Recovering/Resolving]

NARRATIVE: CASE EVENT DATE: 20240508
